FAERS Safety Report 7586990-7 (Version None)
Quarter: 2011Q3

REPORT INFORMATION
  Report Type: 
  Country: None (occurrence: None)
  Receive Date: 20110701
  Receipt Date: 20110623
  Transmission Date: 20111222
  Serious: Yes (Other)
  Sender: FDA-Public Use
  Company Number: PHHY2011US37569

PATIENT
  Sex: Female
  Weight: 48.526 kg

DRUGS (28)
  1. NASONEX [Concomitant]
     Dosage: 50 MCG/AC
  2. VITAMIN B-12 [Concomitant]
     Dosage: 1000 UG, UNK
  3. VITAMIN E [Concomitant]
     Dosage: 200 U, UNK
  4. CLONAZEPAM [Concomitant]
     Dosage: 0.5 MG, UNK
  5. METHENAMINE TAB [Concomitant]
     Dosage: 0.5 G, UNK
  6. SENOKOT [Concomitant]
  7. LACTULOSE [Concomitant]
     Dosage: 10 GM/15
  8. RENOVA [Concomitant]
     Dosage: UNK UKN, UNK
  9. HYDROCORT [Concomitant]
     Dosage: UNK UKN, UNK
  10. ASCORBIC ACID [Concomitant]
     Dosage: 500 MG, UNK
  11. GILENYA [Suspect]
     Indication: MULTIPLE SCLEROSIS
     Dosage: 0.5 MG, QD
     Route: 048
     Dates: start: 20110304
  12. BETAMETHA [Concomitant]
     Dosage: UNK UKN, UNK
  13. TRIAMCINOLONE ACETONIDE W/NYSTATIN [Concomitant]
     Dosage: UNK UKN, UNK
  14. WELLBUTRIN XL [Concomitant]
     Dosage: 150 MG, UNK
  15. IMITREX [Concomitant]
     Dosage: 25 MG, UNK
  16. COQ10 [Concomitant]
     Dosage: UNK UKN, UNK
  17. PREMARIN [Concomitant]
     Dosage: 0.625 MG, UNK
  18. VITAMIN D [Concomitant]
     Dosage: 5000 IU, UNK
  19. CELEXA [Concomitant]
     Dosage: 10 MG, UNK
  20. FERROUS SULFATE TAB [Concomitant]
     Dosage: UNK
  21. FEOSOL [Concomitant]
     Dosage: 45 MG, UNK
  22. CALTRATE +D [Concomitant]
     Dosage: UNK UKN, UNK
  23. NIFEREX [Concomitant]
     Dosage: UNK UKN, UNK
  24. GLUCOSAMINE W/CHONDROITIN [Concomitant]
     Dosage: UNK UKN, UNK
  25. RESTASIS [Concomitant]
     Dosage: UNK UKN, UNK
  26. ULTRAM [Concomitant]
     Dosage: 500 MG, UNK
  27. NEURONTIN [Concomitant]
     Dosage: 800 MG, UNK
  28. LEVOTHYROXINE SODIUM [Concomitant]
     Dosage: 25 UG, UNK

REACTIONS (3)
  - PAIN [None]
  - MIGRAINE [None]
  - HAEMOGLOBIN DECREASED [None]
